FAERS Safety Report 9221546 (Version 2)
Quarter: 2013Q2

REPORT INFORMATION
  Report Type: Spontaneous
  Country: GB (occurrence: None)
  Receive Date: 20130408
  Receipt Date: 20130415
  Transmission Date: 20140414
  Serious: Yes (Other)
  Sender: FDA-Public Use
  Company Number: AUR-APL-2013-02844

PATIENT
  Age: 64 Year
  Sex: Female

DRUGS (4)
  1. SIMVASTATIN [Suspect]
     Indication: BLOOD CHOLESTEROL INCREASED
     Route: 048
     Dates: start: 2009
  2. AMLODIPINE [Suspect]
     Indication: PRODUCT USED FOR UNKNOWN INDICATION
     Route: 048
  3. ATORVASTATIN (ATORVASTATIN) [Concomitant]
  4. RAMIPRIL (RAMIPRIL) [Concomitant]

REACTIONS (15)
  - Malaise [None]
  - Muscle spasms [None]
  - Paraesthesia [None]
  - Nasopharyngitis [None]
  - Infection [None]
  - Weight increased [None]
  - Diarrhoea [None]
  - Abasia [None]
  - Speech disorder [None]
  - Local swelling [None]
  - Swollen tongue [None]
  - Erythema [None]
  - Hepatic steatosis [None]
  - Hepatomegaly [None]
  - Drug interaction [None]
